FAERS Safety Report 8499647-5 (Version None)
Quarter: 2012Q3

REPORT INFORMATION
  Report Type: 
  Country: None (occurrence: None)
  Receive Date: 20120710
  Receipt Date: 20120629
  Transmission Date: 20120928
  Serious: Yes (Other)
  Sender: FDA-Public Use
  Company Number: US-JNJFOC-20120701814

PATIENT
  Age: 86 Year
  Sex: Male
  Weight: 99.79 kg

DRUGS (12)
  1. BENADRYL [Suspect]
     Indication: LACRIMATION INCREASED
     Route: 048
     Dates: start: 20120628, end: 20120629
  2. ATORVASTATIN [Concomitant]
     Indication: BLOOD CHOLESTEROL INCREASED
     Route: 065
  3. FELODIPINE [Concomitant]
     Indication: HYPERTENSION
     Route: 065
  4. JANUVIA [Concomitant]
     Indication: DIABETES MELLITUS
     Dosage: ONE DAILY SINCE 1-2 YEAR
     Route: 065
  5. BENADRYL [Suspect]
     Indication: RHINORRHOEA
     Route: 048
     Dates: start: 20120628, end: 20120629
  6. LANTUS [Suspect]
     Indication: DIABETES MELLITUS
     Dosage: 50UNITS ONCE DAILY
     Route: 065
     Dates: start: 20060101
  7. EPOGEN [Concomitant]
     Indication: RED BLOOD CELL COUNT ABNORMAL
     Route: 065
  8. DIOVAN [Concomitant]
     Indication: HYPERTENSION
     Route: 065
  9. OMEPRAZOLE [Concomitant]
     Indication: PRODUCT USED FOR UNKNOWN INDICATION
     Route: 065
  10. CARVEDILOL [Concomitant]
     Indication: HYPERTENSION
     Route: 065
  11. HYDROCHLOROTHIAZIDE [Concomitant]
     Indication: HYPERTENSION
     Route: 065
  12. ASPIRIN [Concomitant]
     Indication: CARDIAC DISORDER
     Route: 065

REACTIONS (5)
  - FEELING ABNORMAL [None]
  - INCOHERENT [None]
  - HYPERHIDROSIS [None]
  - DYSPHEMIA [None]
  - HYPOKINESIA [None]
